FAERS Safety Report 21107977 (Version 1)
Quarter: 2022Q3

REPORT INFORMATION
  Report Type: Spontaneous
  Country: US (occurrence: US)
  Receive Date: 20220720
  Receipt Date: 20220720
  Transmission Date: 20221027
  Serious: No
  Sender: FDA-Public Use
  Company Number: US-SA-SAC20220715002025

PATIENT
  Age: 39 Year
  Sex: Female

DRUGS (1)
  1. LEMTRADA [Suspect]
     Active Substance: ALEMTUZUMAB
     Route: 042

REACTIONS (4)
  - Skin irritation [Unknown]
  - Herpes zoster [Unknown]
  - Pyrexia [Unknown]
  - Rash [Unknown]

NARRATIVE: CASE EVENT DATE: 20220615
